FAERS Safety Report 5653404-3 (Version None)
Quarter: 2008Q1

REPORT INFORMATION
  Report Type: 
  Country: None (occurrence: None)
  Receive Date: 20080306
  Receipt Date: 20080229
  Transmission Date: 20080703
  Serious: Yes (Other)
  Sender: FDA-Public Use
  Company Number: A0712716A

PATIENT
  Age: 55 Year
  Sex: Male

DRUGS (7)
  1. COREG [Suspect]
     Route: 048
     Dates: start: 20041201
  2. COREG CR [Suspect]
     Dosage: 10MG PER DAY
     Route: 048
     Dates: start: 20080222
  3. DIGOXIN [Suspect]
     Indication: CARDIAC FAILURE
     Dosage: .25MG PER DAY
     Route: 048
     Dates: start: 20070214
  4. SYNTHROID [Concomitant]
  5. BENICAR [Concomitant]
  6. BUMEX [Concomitant]
  7. DIGOXIN [Concomitant]

REACTIONS (9)
  - ARRHYTHMIA [None]
  - BLOOD PRESSURE INCREASED [None]
  - BLOOD THYROID STIMULATING HORMONE INCREASED [None]
  - DRUG INTERACTION [None]
  - DYSPNOEA [None]
  - ELECTROCARDIOGRAM QRS COMPLEX PROLONGED [None]
  - HEART RATE INCREASED [None]
  - HYPOTHYROIDISM [None]
  - THYROID DISORDER [None]
